FAERS Safety Report 4911338-3 (Version None)
Quarter: 2006Q1

REPORT INFORMATION
  Report Type: 
  Country: None (occurrence: None)
  Receive Date: 20060214
  Receipt Date: 20060105
  Transmission Date: 20060701
  Serious: Yes (Congenital Anomaly)
  Sender: FDA-Public Use
  Company Number: US-ABBOTT-06P-163-0321306-00

PATIENT
  Sex: Female
  Weight: 2.391 kg

DRUGS (2)
  1. KALETRA [Suspect]
     Indication: DRUG EXPOSURE DURING PREGNANCY
  2. TRUVADA [Suspect]
     Indication: DRUG EXPOSURE DURING PREGNANCY
     Dosage: 1 TAB=300MG/200MG

REACTIONS (2)
  - MATERNAL DRUGS AFFECTING FOETUS [None]
  - SKULL MALFORMATION [None]
